FAERS Safety Report 12303069 (Version 1)
Quarter: 2016Q2

REPORT INFORMATION
  Report Type: Spontaneous
  Country: US (occurrence: US)
  Receive Date: 20160426
  Receipt Date: 20160426
  Transmission Date: 20160815
  Serious: No
  Sender: FDA-Public Use
  Company Number: US-JNJFOC-20151111816

PATIENT
  Sex: Male

DRUGS (1)
  1. RISPERDAL [Suspect]
     Active Substance: RISPERIDONE
     Indication: ABNORMAL BEHAVIOUR
     Route: 048
     Dates: start: 200104, end: 2007

REACTIONS (5)
  - Galactorrhoea [Unknown]
  - Weight increased [Unknown]
  - Gynaecomastia [Unknown]
  - Hyperglycaemia [Unknown]
  - Pituitary cyst [Unknown]

NARRATIVE: CASE EVENT DATE: 2001
